FAERS Safety Report 7009594-3 (Version None)
Quarter: 2010Q3

REPORT INFORMATION
  Report Type: 
  Country: None (occurrence: None)
  Receive Date: 20100903
  Receipt Date: 20100501
  Transmission Date: 20110219
  Serious: Yes (Other)
  Sender: FDA-Public Use
  Company Number: 2010055288

PATIENT
  Age: 81 Year
  Sex: Male
  Weight: 95.2 kg

DRUGS (5)
  1. DETROL LA [Suspect]
     Indication: MICTURITION URGENCY
     Dosage: 4 MG 1X/DAY ORAL
     Route: 048
  2. TAMSULOSIN (TAMSULOSIN) CAPSULE [Concomitant]
  3. STALEVO 100 [Concomitant]
  4. MIRAPEX [Concomitant]
  5. RASAGILINE MESILATE (RASAGILINE MESILATE) [Concomitant]

REACTIONS (1)
  - HALLUCINATION [None]
